FAERS Safety Report 19448797 (Version 1)
Quarter: 2021Q2

REPORT INFORMATION
  Report Type: Spontaneous
  Country: US (occurrence: US)
  Receive Date: 20210622
  Receipt Date: 20210622
  Transmission Date: 20210717
  Serious: Yes (Other)
  Sender: FDA-Public Use
  Company Number: US-BIOHAVEN PHARMACEUTICALS-2021BHV00768

PATIENT
  Sex: Female
  Weight: 80.73 kg

DRUGS (3)
  1. NURTEC ODT [Suspect]
     Active Substance: RIMEGEPANT SULFATE
     Indication: MIGRAINE
     Dosage: 75 MG, TWICE
     Route: 048
     Dates: start: 2021, end: 2021
  2. EPOGEN [Concomitant]
     Active Substance: ERYTHROPOIETIN
     Dosage: UNK, 1X/MONTH THAT GOES IN MY ARM
  3. RIZATRIPTAN. [Concomitant]
     Active Substance: RIZATRIPTAN
     Dosage: UNK, AS NEEDED

REACTIONS (5)
  - Diarrhoea haemorrhagic [Recovered/Resolved]
  - Rectal haemorrhage [Recovered/Resolved]
  - Gastric haemorrhage [Recovered/Resolved]
  - Diarrhoea [Recovered/Resolved]
  - Haematemesis [Recovered/Resolved]

NARRATIVE: CASE EVENT DATE: 2021
